FAERS Safety Report 13249565 (Version 1)
Quarter: 2017Q1

REPORT INFORMATION
  Report Type: Spontaneous
  Country: US (occurrence: US)
  Receive Date: 20170218
  Receipt Date: 20170218
  Transmission Date: 20170428
  Serious: No
  Sender: FDA-Public Use
  Company Number: US-ALLERGAN-1669261US

PATIENT
  Sex: Female

DRUGS (9)
  1. DOXYCLINE [Concomitant]
     Active Substance: DOXYCYCLINE
     Indication: DRY EYE
     Route: 047
  2. DOXYCLINE [Concomitant]
     Active Substance: DOXYCYCLINE
     Indication: OCULAR ROSACEA
  3. REFRESH [Concomitant]
     Active Substance: UNSPECIFIED INGREDIENT
     Indication: OCULAR ROSACEA
  4. RESTASIS [Suspect]
     Active Substance: CYCLOSPORINE
     Indication: OCULAR ROSACEA
  5. RESTASIS [Suspect]
     Active Substance: CYCLOSPORINE
     Indication: DRY EYE
     Dosage: UNK UNK, BID
     Route: 047
     Dates: start: 201512, end: 201601
  6. PREMARIN [Concomitant]
     Active Substance: ESTROGENS, CONJUGATED
     Indication: PRODUCT USED FOR UNKNOWN INDICATION
     Route: 048
  7. SYSTANE (HYPROMELLOSE 2910 (4000 MPA.S)) [Concomitant]
     Active Substance: HYPROMELLOSE 2910 (4000 MPA.S)
     Indication: DRY EYE
     Dosage: UNK UNK, PRN
     Route: 047
  8. SYSTANE (HYPROMELLOSE 2910 (4000 MPA.S)) [Concomitant]
     Active Substance: HYPROMELLOSE 2910 (4000 MPA.S)
     Indication: OCULAR ROSACEA
  9. REFRESH [Concomitant]
     Active Substance: UNSPECIFIED INGREDIENT
     Indication: DRY EYE
     Dosage: UNK UNK, PRN
     Route: 047

REACTIONS (3)
  - Off label use [Unknown]
  - Drug prescribing error [Unknown]
  - Fungal infection [Not Recovered/Not Resolved]
